FAERS Safety Report 5372357-9 (Version None)
Quarter: 2007Q2

REPORT INFORMATION
  Report Type: 
  Country: None (occurrence: None)
  Receive Date: 20070615
  Receipt Date: 20060828
  Transmission Date: 20071010
  Serious: Yes (Other)
  Sender: FDA-Public Use
  Company Number: 200617229US

PATIENT
  Age: 57 Year
  Sex: Male

DRUGS (6)
  1. LANTUS [Suspect]
     Indication: DIABETES MELLITUS
     Dosage: 140 U QD SC
     Route: 058
     Dates: start: 20050101
  2. INSULIN [Suspect]
     Indication: DIABETES MELLITUS
  3. COUMADIN [Concomitant]
  4. ALTACE [Concomitant]
  5. SIMVASTATIN, EZETIMIBE (VYTORIN) [Concomitant]
  6. PANTOPRAZOLE SODIUM [Concomitant]

REACTIONS (1)
  - HYPERGLYCAEMIA [None]
